FAERS Safety Report 7939371-8 (Version None)
Quarter: 2011Q4

REPORT INFORMATION
  Report Type: 
  Country: None (occurrence: None)
  Receive Date: 20111125
  Receipt Date: 20111115
  Transmission Date: 20120403
  Serious: Yes (Hospitalization, Other)
  Sender: FDA-Public Use
  Company Number: US-BAYER-2010-003604

PATIENT
  Age: 16 Year
  Sex: Female
  Weight: 86.168 kg

DRUGS (24)
  1. LORAZEPAM [Concomitant]
     Indication: ANXIETY
     Dosage: UNK
     Dates: start: 20081012, end: 20100213
  2. BUTALBITAL ACETAMINOPHEN AND CAFFEINE [Concomitant]
     Dosage: UNK
     Dates: start: 20070101
  3. PROMETHAZINE [Concomitant]
     Indication: PRODUCT USED FOR UNKNOWN INDICATION
     Dosage: UNK
     Dates: start: 20090825, end: 20100803
  4. SULFAMETHOXAZOLE AND TRIMETHOPRIM [Concomitant]
     Dosage: UNK
     Dates: start: 20070101
  5. PROPOXYPHENE HCL AND ACETAMINOPHEN [Concomitant]
     Dosage: UNK
     Dates: start: 20070101
  6. NAPROXEN [Concomitant]
     Dosage: 500 MG, UNK
     Dates: start: 20070101
  7. CLOTRIMAZOLE W/BETAMETHASONE DIPROPIONAT [Concomitant]
     Dosage: UNK
     Dates: start: 20070101
  8. YASMIN [Suspect]
     Indication: CONTRACEPTION
     Dosage: UNK
     Route: 048
     Dates: start: 20081001, end: 20090801
  9. IBUPROFEN [Concomitant]
     Dosage: 800 MG, UNK
     Dates: start: 20070101
  10. FIORICET [Concomitant]
     Indication: MIGRAINE
     Dosage: UNK
     Dates: start: 20091126
  11. TRIMETHOBENZAMIDE HCL [Concomitant]
  12. BENADRYL [Concomitant]
     Dosage: 25 MG, UNK
  13. HYDROCORTISONE [Concomitant]
     Dosage: 2.5 %, UNK
     Dates: start: 20070101
  14. ALPRAZOLAM [Concomitant]
     Dosage: UNK
     Dates: start: 20070101
  15. DRYSOL [Concomitant]
     Dosage: UNK
     Dates: start: 20070101
  16. PAROXETINE HCL [Concomitant]
     Dosage: 20 MG, UNK
     Route: 048
  17. TRIAMCINOLONE [Concomitant]
     Dosage: 0.1 %, UNK
     Dates: start: 20070101
  18. HYDROCODONE BITARTRATE AND ACETAMINOPHEN [Concomitant]
     Dosage: 500 MG, UNK
     Dates: start: 20070101
  19. CODEINE SULFATE [Concomitant]
     Dosage: UNK
     Dates: start: 20070101
  20. SF 5000 PLUS [Concomitant]
     Dosage: 1.1 %, UNK
  21. DICLOFENAC SODIUM [Concomitant]
     Dosage: UNK
     Dates: start: 20070101
  22. MOMETASONE FUROATE [Concomitant]
     Dosage: UNK
     Dates: start: 20070101
  23. MULTIVITAMINS, COMBINATIONS [Concomitant]
     Dosage: UNK
     Dates: start: 20070101
  24. AMOXICILLIN [Concomitant]
     Dosage: 500 MG, UNK

REACTIONS (6)
  - CHOLECYSTITIS CHRONIC [None]
  - CHOLELITHIASIS [None]
  - CHOLESTEROSIS [None]
  - GALLBLADDER INJURY [None]
  - PANCREATIC DISORDER [None]
  - PAIN [None]
